FAERS Safety Report 6375829-3 (Version None)
Quarter: 2009Q3

REPORT INFORMATION
  Report Type: 
  Country: None (occurrence: None)
  Receive Date: 20090924
  Receipt Date: 20090918
  Transmission Date: 20100115
  Serious: Yes (Life-Threatening, Hospitalization)
  Sender: FDA-Public Use
  Company Number: GB-ELI_LILLY_AND_COMPANY-GB200909004334

PATIENT
  Age: 56 Year
  Sex: Male
  Weight: 121 kg

DRUGS (7)
  1. BYETTA [Suspect]
     Indication: DIABETES MELLITUS
     Dosage: 5 UG, 2/D
     Route: 058
  2. BYETTA [Suspect]
     Dosage: 10 UG, 2/D
     Route: 058
     Dates: start: 20090110, end: 20090317
  3. ASPIRIN [Concomitant]
  4. ATORVASTATIN [Concomitant]
  5. HUMALOG [Concomitant]
  6. METFORMIN [Concomitant]
  7. RAMIPRIL [Concomitant]

REACTIONS (3)
  - HEPATIC FAILURE [None]
  - POST PROCEDURAL BILE LEAK [None]
  - RENAL FAILURE ACUTE [None]
